FAERS Safety Report 13586526 (Version 2)
Quarter: 2017Q3

REPORT INFORMATION
  Report Type: Spontaneous
  Country: US (occurrence: US)
  Receive Date: 20170526
  Receipt Date: 20170711
  Transmission Date: 20171127
  Serious: No
  Sender: FDA-Public Use
  Company Number: US-LEO PHARMA-303086

PATIENT
  Age: 14 Year
  Sex: Female
  Weight: 45.36 kg

DRUGS (1)
  1. PROTOPIC [Suspect]
     Active Substance: TACROLIMUS
     Indication: ECZEMA

REACTIONS (3)
  - Incorrect drug administration duration [Unknown]
  - No adverse event [Unknown]
  - Drug ineffective [Unknown]
